FAERS Safety Report 7500474-3 (Version None)
Quarter: 2011Q2

REPORT INFORMATION
  Report Type: 
  Country: None (occurrence: None)
  Receive Date: 20110524
  Receipt Date: 20110418
  Transmission Date: 20111010
  Serious: No
  Sender: FDA-Public Use
  Company Number: US-BRISTOL-MYERS SQUIBB COMPANY-15680192

PATIENT
  Age: 52 Year
  Sex: Female

DRUGS (4)
  1. GLIPIZIDE [Concomitant]
     Dosage: GLIPIZIDE ER.
  2. LOSARTAN [Concomitant]
  3. ONGLYZA [Suspect]
     Indication: DIABETES MELLITUS
     Dosage: TAKEN SINCE OCT OR NOV2010.
     Dates: start: 20100101
  4. METFORMIN HCL [Concomitant]

REACTIONS (2)
  - VISION BLURRED [None]
  - NASOPHARYNGITIS [None]
